FAERS Safety Report 11316333 (Version 1)
Quarter: 2015Q3

REPORT INFORMATION
  Report Type: Spontaneous
  Country: US (occurrence: None)
  Receive Date: 20150727
  Receipt Date: 20150727
  Transmission Date: 20151125
  Serious: Yes (Hospitalization)
  Sender: FDA-Public Use
  Company Number: None

PATIENT
  Age: 92 Year
  Sex: Male

DRUGS (11)
  1. SENNA [Concomitant]
     Active Substance: SENNA LEAF\SENNOSIDES\SENNOSIDES A AND B
  2. FLUTICASONE [Concomitant]
     Active Substance: FLUTICASONE\FLUTICASONE PROPIONATE
  3. LACTULOSE. [Concomitant]
     Active Substance: LACTULOSE
  4. LANSOPRAZOLE. [Concomitant]
     Active Substance: LANSOPRAZOLE
  5. QUETIAPINE [Concomitant]
     Active Substance: QUETIAPINE
  6. MORPHINE [Concomitant]
     Active Substance: MORPHINE
  7. CYANOCOALAMIN [Concomitant]
  8. ONDANSETRON [Concomitant]
     Active Substance: ONDANSETRON
  9. DIGOXIN. [Suspect]
     Active Substance: DIGOXIN
     Indication: ATRIAL FIBRILLATION
     Route: 048
     Dates: end: 20150605
  10. ALLOPURINOL. [Concomitant]
     Active Substance: ALLOPURINOL
  11. DOCUSATE [Concomitant]
     Active Substance: DOCUSATE

REACTIONS (5)
  - Confusional state [None]
  - Incoherent [None]
  - Hyperkalaemia [None]
  - Mental status changes [None]
  - Electroencephalogram abnormal [None]

NARRATIVE: CASE EVENT DATE: 20150605
